FAERS Safety Report 13095346 (Version 1)
Quarter: 2017Q1

REPORT INFORMATION
  Report Type: Spontaneous
  Country: ES (occurrence: ES)
  Receive Date: 20170108
  Receipt Date: 20170108
  Transmission Date: 20170428
  Serious: Yes (Other)
  Sender: FDA-Public Use
  Company Number: ES-009507513-1701ESP002678

PATIENT
  Age: 59 Year
  Sex: Female

DRUGS (2)
  1. BISOPROLOL [Concomitant]
     Active Substance: BISOPROLOL
  2. INTRON A [Suspect]
     Active Substance: INTERFERON ALFA-2B
     Route: 058
     Dates: start: 20160113, end: 20160727

REACTIONS (1)
  - Granuloma [Recovered/Resolved]

NARRATIVE: CASE EVENT DATE: 2016
